FAERS Safety Report 6001677-X (Version None)
Quarter: 2008Q4

REPORT INFORMATION
  Report Type: 
  Country: None (occurrence: None)
  Receive Date: 20081215
  Receipt Date: 20081121
  Transmission Date: 20090506
  Serious: No
  Sender: FDA-Public Use
  Company Number: US-B.I. PHARMACEUTICALS,INC./RIDGEFIELD-2008-BP-17742BP

PATIENT
  Sex: Female

DRUGS (5)
  1. ZANTAC [Suspect]
     Indication: DYSPEPSIA
     Dosage: 900MG
     Route: 048
     Dates: start: 20081101
  2. ALBUTEROL [Concomitant]
     Indication: ASTHMA
     Route: 055
  3. ADVAIR DISKUS 250/50 [Concomitant]
     Indication: ASTHMA
     Route: 055
  4. SINGULAIR [Concomitant]
     Indication: ASTHMA
     Dosage: 25MG
     Route: 048
  5. PROZAC [Concomitant]
     Indication: INJURY
     Dosage: 40MG
     Route: 048

REACTIONS (2)
  - ACCIDENTAL OVERDOSE [None]
  - DYSPNOEA [None]
